FAERS Safety Report 10837692 (Version 1)
Quarter: 2015Q1

REPORT INFORMATION
  Report Type: Spontaneous
  Country: US (occurrence: US)
  Receive Date: 20150219
  Receipt Date: 20150219
  Transmission Date: 20150721
  Serious: No
  Sender: FDA-Public Use
  Company Number: US-GLAXOSMITHKLINE-US2014033200

PATIENT
  Age: 72 Year
  Sex: Female

DRUGS (15)
  1. FENNEL SEED [Concomitant]
  2. GRAPE SEED EXTRACT [Concomitant]
     Active Substance: GRAPE SEED EXTRACT
  3. ZINC SULFATE [Concomitant]
     Active Substance: ZINC SULFATE\ZINC SULFATE ANHYDROUS
  4. LUTEIN [Concomitant]
     Active Substance: LUTEIN
  5. CRANBERRY. [Concomitant]
     Active Substance: CRANBERRY
  6. PANTOTHENIC ACID [Concomitant]
     Active Substance: PANTOTHENIC ACID
  7. ADVAIR DISKUS [Suspect]
     Active Substance: FLUTICASONE PROPIONATE\SALMETEROL XINAFOATE
     Indication: ASTHMA
     Dosage: 250/50
     Route: 055
     Dates: start: 2007
  8. VESICARE [Suspect]
     Active Substance: SOLIFENACIN SUCCINATE
     Indication: PRODUCT USED FOR UNKNOWN INDICATION
     Dosage: UNK
     Dates: end: 201406
  9. TOLTERODINE TARTRATE. [Suspect]
     Active Substance: TOLTERODINE TARTRATE
     Indication: PRODUCT USED FOR UNKNOWN INDICATION
     Dosage: UNK
     Dates: start: 201406, end: 20141130
  10. CALCIUM [Concomitant]
     Active Substance: CALCIUM
  11. ASPIRIN. [Concomitant]
     Active Substance: ASPIRIN
  12. MAGNESIUM [Concomitant]
     Active Substance: MAGNESIUM
  13. FISH OIL [Concomitant]
     Active Substance: FISH OIL
  14. GARLIC. [Concomitant]
     Active Substance: GARLIC
  15. L-LYSIN [Concomitant]

REACTIONS (16)
  - Influenza [Recovered/Resolved]
  - Pollakiuria [Recovering/Resolving]
  - Chills [Recovering/Resolving]
  - Nausea [Recovering/Resolving]
  - Chest pain [Recovering/Resolving]
  - Treatment noncompliance [Unknown]
  - Hypertonic bladder [Recovering/Resolving]
  - Micturition urgency [Recovering/Resolving]
  - Urinary incontinence [Recovering/Resolving]
  - Feeling abnormal [Recovering/Resolving]
  - Breast pain [Recovering/Resolving]
  - Decreased appetite [Unknown]
  - Pyrexia [Recovering/Resolving]
  - Dyspnoea [Recovering/Resolving]
  - Nasal congestion [Not Recovered/Not Resolved]
  - Therapeutic procedure [Unknown]

NARRATIVE: CASE EVENT DATE: 2010
